FAERS Safety Report 14318798 (Version 6)
Quarter: 2018Q3

REPORT INFORMATION
  Report Type: Spontaneous
  Country: CA (occurrence: CA)
  Receive Date: 20171222
  Receipt Date: 20180904
  Transmission Date: 20181010
  Serious: Yes (Other)
  Sender: FDA-Public Use
  Company Number: CA-CELLTRION INC.-2017CA002784

PATIENT

DRUGS (10)
  1. INFLECTRA [Suspect]
     Active Substance: INFLIXIMAB-DYYB
     Dosage: 300 MG, CYCLIC (EVERY 8   WEEKS); INTRAVENOUS
     Route: 042
     Dates: start: 20180727
  2. INFLECTRA [Suspect]
     Active Substance: INFLIXIMAB-DYYB
     Dosage: 300 MG, CYCLIC (EVERY 8 WEEKS)
     Route: 042
     Dates: start: 20180406
  3. INFLECTRA [Suspect]
     Active Substance: INFLIXIMAB-DYYB
     Dosage: 300 MG, CYCLIC (EVERY 0,2,6 WEEKS THEN EVERY 8 WEEKS FOR 24 MONTHS)
     Route: 042
  4. INFLECTRA [Suspect]
     Active Substance: INFLIXIMAB-DYYB
     Dosage: UNK
     Route: 042
     Dates: start: 20170908
  5. INFLECTRA [Suspect]
     Active Substance: INFLIXIMAB-DYYB
     Dosage: UNK
     Route: 042
     Dates: start: 20171212
  6. INFLECTRA [Suspect]
     Active Substance: INFLIXIMAB-DYYB
     Dosage: UNK
     Route: 065
     Dates: start: 20180209
  7. INFLECTRA [Suspect]
     Active Substance: INFLIXIMAB-DYYB
     Dosage: UNK
     Route: 065
     Dates: start: 20180316
  8. INFLECTRA [Suspect]
     Active Substance: INFLIXIMAB-DYYB
     Indication: ANKYLOSING SPONDYLITIS
     Dosage: 265 MG, CYCLIC (EVERY 0,2,6 WEEKS THEN EVERY 8 WEEKS FOR 24 MONTHS)
     Route: 042
     Dates: start: 20170210
  9. INFLECTRA [Suspect]
     Active Substance: INFLIXIMAB-DYYB
     Dosage: 300 MG, CYCLIC (EVERY 0,2,6 WEEKS THEN EVERY 8 WEEKS)
     Route: 042
  10. INFLECTRA [Suspect]
     Active Substance: INFLIXIMAB-DYYB
     Dosage: 300 MG, CYCLIC (EVERY 8   WEEKS); INTRAVENOUS
     Route: 042
     Dates: start: 20180601

REACTIONS (18)
  - Pneumonia [Not Recovered/Not Resolved]
  - Head injury [Unknown]
  - Costochondritis [Recovering/Resolving]
  - Weight decreased [Unknown]
  - Productive cough [Unknown]
  - Nausea [Recovered/Resolved]
  - Erythema [Recovered/Resolved]
  - Concussion [Unknown]
  - Fall [Unknown]
  - Musculoskeletal chest pain [Recovering/Resolving]
  - Malaise [Unknown]
  - Headache [Recovered/Resolved]
  - Fatigue [Recovered/Resolved]
  - Asthenia [Recovered/Resolved]
  - Nasopharyngitis [Recovering/Resolving]
  - Influenza like illness [Not Recovered/Not Resolved]
  - Incorrect dose administered [Unknown]
  - Dyspnoea [Unknown]

NARRATIVE: CASE EVENT DATE: 20170210
